FAERS Safety Report 8862200 (Version 1)
Quarter: 2012Q4

REPORT INFORMATION
  Report Type: 
  Country: TW (occurrence: TW)
  Receive Date: 20121026
  Receipt Date: 20121026
  Transmission Date: 20130627
  Serious: Yes (Other)
  Sender: FDA-Public Use
  Company Number: TW-009507513-1210TWN009329

PATIENT
  Age: 27 Year
  Sex: Female

DRUGS (1)
  1. CLARINASE [Suspect]
     Dosage: Loratadine 5mg + Pseudoephedrine sulfate 60 mg qd oral
     Route: 048
     Dates: start: 2008, end: 2008

REACTIONS (1)
  - Epilepsy [Recovered/Resolved]
